FAERS Safety Report 17766521 (Version 1)
Quarter: 2020Q2

REPORT INFORMATION
  Report Type: Spontaneous
  Country: GB (occurrence: GB)
  Receive Date: 20200510
  Receipt Date: 20200510
  Transmission Date: 20200714
  Serious: Yes (Other)
  Sender: FDA-Public Use
  Company Number: None

PATIENT
  Age: 60 Year
  Sex: Female
  Weight: 47.25 kg

DRUGS (2)
  1. PSYLLIUM HUSK. [Suspect]
     Active Substance: PSYLLIUM HUSK
     Indication: WEIGHT DECREASED
     Route: 048
     Dates: start: 20200427, end: 20200430
  2. PSYLLIUM HUSK. [Suspect]
     Active Substance: PSYLLIUM HUSK
     Indication: CONSTIPATION
     Route: 048
     Dates: start: 20200427, end: 20200430

REACTIONS (4)
  - Vomiting [None]
  - Diarrhoea [None]
  - Abdominal pain upper [None]
  - Ergot poisoning [None]

NARRATIVE: CASE EVENT DATE: 20200430
